FAERS Safety Report 6567300-0 (Version None)
Quarter: 2010Q1

REPORT INFORMATION
  Report Type: 
  Country: None (occurrence: None)
  Receive Date: 20100202
  Receipt Date: 20100120
  Transmission Date: 20100710
  Serious: Yes (Hospitalization)
  Sender: FDA-Public Use
  Company Number: PHHY2010DE04308

PATIENT
  Age: 74 Year
  Sex: Male

DRUGS (12)
  1. SANDIMMUNE [Suspect]
     Indication: RENAL TRANSPLANT
     Dosage: 100 MG, BID
     Route: 048
     Dates: start: 19920101
  2. PREDNISOLONE [Suspect]
     Indication: RENAL TRANSPLANT
     Dosage: 2.5 MG, QD
     Route: 048
     Dates: start: 19920101
  3. RISPERDAL [Concomitant]
     Indication: DEPRESSION
     Dosage: 0.5 MG, BID
     Route: 048
  4. TAVANIC [Concomitant]
     Dosage: 500 MG, QD
     Route: 048
     Dates: start: 20091209
  5. CALCIUM ACETATE [Concomitant]
     Indication: RENAL TRANSPLANT
     Dosage: 500 MG, TID
     Route: 048
  6. THIAMAZOLE [Concomitant]
     Indication: HYPERTHYROIDISM
     Dosage: 20 MG, QD
     Route: 048
     Dates: start: 20090201
  7. ALLOPURINOL [Concomitant]
     Indication: HYPERURICAEMIA
     Dosage: 100 MG, QD
     Route: 048
  8. COTRIM [Concomitant]
     Indication: WOUND INFECTION STAPHYLOCOCCAL
     Dosage: 1 DF, TID
     Route: 048
     Dates: start: 20090929
  9. PARACETAMOL [Concomitant]
     Indication: PAIN
     Dosage: 500 MG, TID
     Route: 048
  10. TRANSTEC [Concomitant]
     Indication: PAIN
     Dosage: 1 DF, QD
     Route: 062
  11. BERLINSULIN H NORMAL [Concomitant]
     Indication: TYPE 2 DIABETES MELLITUS
     Dosage: 14-10-22 IU
     Route: 058
     Dates: start: 20000101
  12. BERLINSULIN H BASAL [Concomitant]
     Indication: TYPE 2 DIABETES MELLITUS
     Dosage: 20-0-10 IU
     Route: 058

REACTIONS (6)
  - DEHYDRATION [None]
  - GENERAL PHYSICAL HEALTH DETERIORATION [None]
  - INFECTION [None]
  - STUPOR [None]
  - TONGUE DRY [None]
  - TREMOR [None]
